FAERS Safety Report 7651227-7 (Version None)
Quarter: 2011Q3

REPORT INFORMATION
  Report Type: 
  Country: None (occurrence: None)
  Receive Date: 20110802
  Receipt Date: 20110721
  Transmission Date: 20111222
  Serious: Yes (Other)
  Sender: FDA-Public Use
  Company Number: US-ELI_LILLY_AND_COMPANY-US201107007057

PATIENT
  Sex: Female

DRUGS (16)
  1. FOLIC ACID [Concomitant]
     Dosage: 1 G, QD
  2. FAMOTIDINE [Concomitant]
     Dosage: 20 MG, UNKNOWN
  3. COZAAR [Concomitant]
     Dosage: 100 MG, UNKNOWN
  4. SIMVASTATIN [Concomitant]
     Dosage: 40 MG, UNKNOWN
  5. LISINOPRIL [Concomitant]
     Dosage: 20 MG, UNKNOWN
  6. HUMULIN N [Suspect]
     Indication: TYPE 2 DIABETES MELLITUS
     Dosage: 40 U, EACH MORNING
     Dates: start: 19910101
  7. LEVEMIR [Concomitant]
     Dosage: 15 U, OTHER
  8. FUROSEMIDE [Concomitant]
     Dosage: 80 MG, UNKNOWN
  9. ATENOLOL [Concomitant]
     Dosage: 50 MG, UNKNOWN
  10. MUCINEX [Concomitant]
     Dosage: UNK, PRN
  11. PLAVIX [Concomitant]
     Dosage: 75 MG, UNKNOWN
  12. ISOSORBIDE MONONITRATE [Concomitant]
     Dosage: 120 MG, UNKNOWN
  13. ASPIRIN [Concomitant]
     Dosage: 80 MG, UNKNOWN
  14. CLARITIN [Concomitant]
     Dosage: UNK, PRN
  15. JANUVIA [Concomitant]
     Dosage: 50 MG, UNKNOWN
  16. BENZONATATE [Concomitant]
     Dosage: UNK, PRN
     Route: 061

REACTIONS (9)
  - RETINOPATHY [None]
  - RENAL FUNCTION TEST ABNORMAL [None]
  - DRUG DOSE OMISSION [None]
  - PANIC REACTION [None]
  - VISUAL IMPAIRMENT [None]
  - DIABETIC NEPHROPATHY [None]
  - BLOOD GLUCOSE ABNORMAL [None]
  - EYE HAEMORRHAGE [None]
  - HYPERTENSION [None]
